FAERS Safety Report 8877527 (Version 2)
Quarter: 2012Q4

REPORT INFORMATION
  Report Type: 
  Country: JP (occurrence: JP)
  Receive Date: 20121024
  Receipt Date: 20121102
  Transmission Date: 20130627
  Serious: Yes (Other)
  Sender: FDA-Public Use
  Company Number: JP-PFIZER INC-2012264296

PATIENT
  Age: 76 Year
  Sex: Male

DRUGS (3)
  1. LYRICA [Suspect]
     Indication: BACK PAIN
     Dosage: 25 mg, daily
     Route: 048
  2. LYRICA [Interacting]
     Indication: NEUROPATHIC PAIN
  3. UNSPECIFIED INGREDIENT [Interacting]
     Dosage: UNK

REACTIONS (4)
  - Haemorrhage [Recovered/Resolved]
  - Gingival bleeding [Recovered/Resolved]
  - Drug interaction [Recovered/Resolved]
  - Anaesthetic complication [None]
